FAERS Safety Report 23921605 (Version 1)
Quarter: 2024Q2

REPORT INFORMATION
  Report Type: Spontaneous
  Country: BR (occurrence: BR)
  Receive Date: 20240530
  Receipt Date: 20240530
  Transmission Date: 20240715
  Serious: Yes (Other)
  Sender: FDA-Public Use
  Company Number: BR-SA-SAC20240527000118

PATIENT
  Age: 1 Year
  Sex: Female

DRUGS (3)
  1. SABRIL [Suspect]
     Active Substance: VIGABATRIN
     Indication: Infantile spasms
     Dosage: 1 TABLET IN THE MORNING, 1 IN THE AFTERNOON AND 1+3QTR IN THE EVENING
     Route: 065
  2. NITRAZEPAM [Concomitant]
     Active Substance: NITRAZEPAM
     Indication: Product used for unknown indication
     Dosage: 2 BOXES PER MONTH
     Route: 065
  3. PHENOBARBITAL [Concomitant]
     Active Substance: PHENOBARBITAL
     Indication: Product used for unknown indication
     Dosage: UNK
     Route: 065

REACTIONS (3)
  - Partial seizures [Unknown]
  - Product contamination [Unknown]
  - Wrong technique in product usage process [Unknown]

NARRATIVE: CASE EVENT DATE: 20220801
